FAERS Safety Report 4842297-X (Version None)
Quarter: 2005Q4

REPORT INFORMATION
  Report Type: 
  Country: None (occurrence: None)
  Receive Date: 20051129
  Receipt Date: 20051109
  Transmission Date: 20060501
  Serious: No
  Sender: FDA-Public Use
  Company Number: US_0411107551

PATIENT
  Age: 30 Year
  Sex: Female
  Weight: 93.6 kg

DRUGS (33)
  1. ZYPREXA [Suspect]
     Indication: ANXIETY
     Dosage: 20 MG, DAILY (1/D), ORAL
     Route: 048
     Dates: start: 19990810, end: 20040712
  2. SYMBYAX [Concomitant]
  3. ABILIFY [Concomitant]
  4. SEROQUEL [Concomitant]
  5. GEODON [Concomitant]
  6. DEPAKOTE [Concomitant]
  7. SINEQUAN [Concomitant]
  8. REMERON (MIRTAZAPINE ORIFARM) [Concomitant]
  9. EFFEXOR XR [Concomitant]
  10. GLUCOPHAGE [Concomitant]
  11. MEDROXYPROGESTERONE [Concomitant]
  12. NEURONTIN [Concomitant]
  13. XANAX [Concomitant]
  14. CELEXA [Concomitant]
  15. PREVACID [Concomitant]
  16. TRICOR [Concomitant]
  17. ZYRTEC [Concomitant]
  18. ZANAFLEX [Concomitant]
  19. TYLENOL W/ CODEINE NO. 3 [Concomitant]
  20. TEQUIN [Concomitant]
  21. COMBIVENT [Concomitant]
  22. ADVAIR DISKUS 100/50 [Concomitant]
  23. LEXAPRO [Concomitant]
  24. HYDROCHLOROTHIAZIDE [Concomitant]
  25. ACETYLSALICYLIC  ACID ENTERIC COATED (ACETYLSALICYLIC ACID ENTERIC COA [Concomitant]
  26. LIDODERM (LIDOCAINE) [Concomitant]
  27. TOPAMAX [Concomitant]
  28. LOPID [Concomitant]
  29. LIPITOR [Concomitant]
  30. INDERAL [Concomitant]
  31. PROPRANOLOL [Concomitant]
  32. TRIAMCINOLONE [Concomitant]
  33. PROZAC [Concomitant]

REACTIONS (19)
  - AMENORRHOEA [None]
  - CARPAL TUNNEL SYNDROME [None]
  - CENTRAL OBESITY [None]
  - CHEST PAIN [None]
  - CONSTIPATION [None]
  - DIABETES MELLITUS NON-INSULIN-DEPENDENT [None]
  - DYSPNOEA [None]
  - GENERAL PHYSICAL CONDITION ABNORMAL [None]
  - HEADACHE [None]
  - HYPOGLYCAEMIA [None]
  - INTESTINAL FUNCTIONAL DISORDER [None]
  - NECK PAIN [None]
  - NEUROPATHY PERIPHERAL [None]
  - PALPITATIONS [None]
  - POLYP COLORECTAL [None]
  - PUNCTATE KERATITIS [None]
  - RECTAL HAEMORRHAGE [None]
  - SINUS TACHYCARDIA [None]
  - WEIGHT INCREASED [None]
